FAERS Safety Report 25690221 (Version 2)
Quarter: 2025Q3

REPORT INFORMATION
  Report Type: Report from Study
  Country: EU (occurrence: EU)
  Receive Date: 20250818
  Receipt Date: 20250909
  Transmission Date: 20251021
  Serious: Yes (Hospitalization)
  Sender: JAZZ
  Company Number: EU-PHARMAMAR-2025PM000552

PATIENT
  Age: 84 Year
  Weight: 90.4 kg

DRUGS (5)
  1. LURBINECTEDIN [Suspect]
     Active Substance: LURBINECTEDIN
     Indication: Small cell lung cancer
  2. LURBINECTEDIN [Suspect]
     Active Substance: LURBINECTEDIN
  3. ONDANSETRON [Concomitant]
     Active Substance: ONDANSETRON
     Indication: Premedication
  4. METHYLPREDNISOLONE [Concomitant]
     Active Substance: METHYLPREDNISOLONE
     Indication: Premedication
  5. POLARAMINE [Concomitant]
     Active Substance: DEXCHLORPHENIRAMINE MALEATE
     Indication: Premedication

REACTIONS (3)
  - Lung disorder [Recovered/Resolved]
  - Pyrexia [Recovered/Resolved]
  - Pneumothorax [Recovered/Resolved]

NARRATIVE: CASE EVENT DATE: 20250404
